FAERS Safety Report 5875944-4 (Version None)
Quarter: 2008Q3

REPORT INFORMATION
  Report Type: 
  Country: None (occurrence: None)
  Receive Date: 20080905
  Receipt Date: 20080821
  Transmission Date: 20090109
  Serious: Yes (Hospitalization)
  Sender: FDA-Public Use
  Company Number: 8036617

PATIENT
  Age: 33 Year
  Sex: Female

DRUGS (9)
  1. NIFEDIPINE [Suspect]
     Indication: TOCOLYSIS
     Dosage: SBL
     Route: 060
  2. NIFEDIPINE [Suspect]
     Indication: TOCOLYSIS
     Dosage: 40 MG 4/D    SBL
     Route: 060
  3. NIFEDIPINE [Suspect]
     Indication: TOCOLYSIS
  4. ERYTHROMYCIN [Suspect]
     Indication: PREMATURE RUPTURE OF MEMBRANES
     Dosage: 250 MG 4/D
  5. BETAMETHASONE [Concomitant]
  6. ASPIRIN [Concomitant]
  7. ATOSIBAN [Concomitant]
  8. CIPROFLOXACIN [Concomitant]
  9. FRAGMIN [Concomitant]

REACTIONS (5)
  - CAESAREAN SECTION [None]
  - DRUG INEFFECTIVE FOR UNAPPROVED INDICATION [None]
  - OFF LABEL USE [None]
  - PREMATURE LABOUR [None]
  - PREMATURE RUPTURE OF MEMBRANES [None]
